FAERS Safety Report 6266299 (Version 1)
Quarter: 2020Q3

REPORT INFORMATION
  Report Type: Report from Study
  Country: US (occurrence: US)
  Receive Date: 20070321
  Receipt Date: 20070321
  Transmission Date: 20201105
  Serious: Yes (Hospitalization)
  Sender: FDA-Public Use
  Company Number: HQWYE430112MAR07

PATIENT
  Age: 72 Year
  Sex: Female
  Weight: 93.07 kg

DRUGS (5)
  1. ACETYLSALICYLIC ACID [Concomitant]
     Active Substance: ASPIRIN
     Route: 048
  2. RALOXIFENE HYDROCHLORIDE. [Suspect]
     Active Substance: RALOXIFENE HYDROCHLORIDE
     Indication: OSTEOPOROSIS
     Route: 048
     Dates: start: 20030828, end: 20070307
  3. CALCIUM [Concomitant]
     Active Substance: CALCIUM
     Dosage: NOT PROVIDED
  4. ASCORBIC ACID\ERGOCALCIFEROL\FOLIC ACID\PANTHENOL\RETINOL\RIBOFLAVIN\THIAMINE HYDROCHLORIDE [Concomitant]
     Active Substance: ASCORBIC ACID\ERGOCALCIFEROL\FOLIC ACID\PANTHENOL\RETINOL\RIBOFLAVIN\THIAMINE HYDROCHLORIDE
     Dosage: NOT PROVIDED
  5. METAMUCIL THERAPY FOR REGULARITY [Concomitant]
     Active Substance: PSYLLIUM HUSK

REACTIONS (1)
  - Acute coronary syndrome [Recovered/Resolved]

NARRATIVE: CASE EVENT DATE: 20070221
